FAERS Safety Report 10176302 (Version 2)
Quarter: 2014Q2

REPORT INFORMATION
  Report Type: Spontaneous
  Country: US (occurrence: US)
  Receive Date: 20140516
  Receipt Date: 20140606
  Transmission Date: 20141212
  Serious: Yes (Other)
  Sender: FDA-Public Use
  Company Number: US-PFIZER INC-2014132835

PATIENT
  Age: 46 Year
  Sex: Female

DRUGS (4)
  1. LYRICA [Suspect]
     Dosage: 100 MG, 3X/DAY
     Route: 048
  2. HYDROCODONE W/ACETAMINOPHEN [Concomitant]
     Dosage: 5/325 MG ONE DOSE Q6HRS, AS NEEDED
  3. CLONAZEPAM [Concomitant]
     Dosage: UNK
  4. DULOXETINE [Concomitant]
     Dosage: UNK

REACTIONS (3)
  - Overdose [Recovered/Resolved]
  - Unresponsive to stimuli [Recovered/Resolved]
  - Altered state of consciousness [Recovered/Resolved]
